FAERS Safety Report 5691929-5 (Version None)
Quarter: 2008Q1

REPORT INFORMATION
  Report Type: 
  Country: None (occurrence: None)
  Receive Date: 20080331
  Receipt Date: 20080319
  Transmission Date: 20080703
  Serious: Yes (Death, Hospitalization)
  Sender: FDA-Public Use
  Company Number: 2008-00859

PATIENT
  Age: 69 Year
  Sex: Male

DRUGS (2)
  1. VELCADE [Suspect]
     Indication: MULTIPLE MYELOMA
     Dosage: 1.00 MG/M2,  INTRAVENOUS
     Route: 042
     Dates: start: 20070801, end: 20080229
  2. ZOMETA [Concomitant]

REACTIONS (4)
  - BACK PAIN [None]
  - DEHYDRATION [None]
  - DIARRHOEA [None]
  - VOMITING [None]
